FAERS Safety Report 14623429 (Version 2)
Quarter: 2018Q1

REPORT INFORMATION
  Report Type: Report from Study
  Country: None (occurrence: US)
  Receive Date: 20180312
  Receipt Date: 20180313
  Transmission Date: 20180509
  Serious: Yes (Hospitalization)
  Sender: FDA-Public Use
  Company Number: US-ABBVIE-18K-163-2272722-00

PATIENT
  Age: 27 Year
  Sex: Female
  Weight: 118.04 kg

DRUGS (2)
  1. HUMIRA [Suspect]
     Active Substance: ADALIMUMAB
     Indication: CROHN^S DISEASE
     Route: 058
     Dates: start: 20170711
  2. BALSALAZIDE [Concomitant]
     Active Substance: BALSALAZIDE
     Indication: CROHN^S DISEASE

REACTIONS (3)
  - Clostridium difficile infection [Recovering/Resolving]
  - Device issue [Unknown]
  - Haematochezia [Recovered/Resolved]

NARRATIVE: CASE EVENT DATE: 201802
